FAERS Safety Report 19429439 (Version 2)
Quarter: 2023Q4

REPORT INFORMATION
  Report Type: Spontaneous
  Country: RO (occurrence: RO)
  Receive Date: 20210617
  Receipt Date: 20231130
  Transmission Date: 20240109
  Serious: Yes (Life-Threatening, Hospitalization, Other)
  Sender: FDA-Public Use
  Company Number: RO-ACCORD-228006

PATIENT
  Age: 68 Year
  Sex: Male

DRUGS (2)
  1. CAPECITABINE [Suspect]
     Active Substance: CAPECITABINE
     Indication: Colon cancer
  2. INSULIN NOS [Concomitant]
     Active Substance: INSULIN NOS
     Indication: Type 2 diabetes mellitus

REACTIONS (3)
  - Dihydropyrimidine dehydrogenase deficiency [Unknown]
  - Terminal ileitis [Recovered/Resolved]
  - Drug ineffective [Unknown]
